FAERS Safety Report 16097406 (Version 1)
Quarter: 2019Q1

REPORT INFORMATION
  Report Type: Spontaneous
  Country: FR (occurrence: FR)
  Receive Date: 20190320
  Receipt Date: 20190320
  Transmission Date: 20190418
  Serious: Yes (Other)
  Sender: FDA-Public Use
  Company Number: FR-009507513-1903FRA007962

PATIENT
  Age: 24 Year
  Sex: Female
  Weight: 96 kg

DRUGS (1)
  1. NEXPLANON [Suspect]
     Active Substance: ETONOGESTREL
     Indication: CONTRACEPTION
     Route: 058
     Dates: end: 201711

REACTIONS (2)
  - Unwanted pregnancy [Not Recovered/Not Resolved]
  - Device damage [Not Recovered/Not Resolved]

NARRATIVE: CASE EVENT DATE: 2017
